FAERS Safety Report 5750300-8 (Version None)
Quarter: 2008Q2

REPORT INFORMATION
  Report Type: 
  Country: None (occurrence: None)
  Receive Date: 20080522
  Receipt Date: 20080522
  Transmission Date: 20081010
  Serious: Yes (Life-Threatening, Hospitalization)
  Sender: FDA-Public Use
  Company Number: None

PATIENT
  Age: 44 Year
  Sex: Male
  Weight: 157.8518 kg

DRUGS (1)
  1. AVELOX [Suspect]

REACTIONS (5)
  - BLOOD PRESSURE DECREASED [None]
  - ERYTHEMA [None]
  - OBSTRUCTIVE AIRWAYS DISORDER [None]
  - PRURITUS GENERALISED [None]
  - SELF-MEDICATION [None]
